FAERS Safety Report 6925460-3 (Version None)
Quarter: 2010Q3

REPORT INFORMATION
  Report Type: 
  Country: None (occurrence: None)
  Receive Date: 20100816
  Receipt Date: 20100805
  Transmission Date: 20110219
  Serious: Yes (Other)
  Sender: FDA-Public Use
  Company Number: US-CELGENEUS-163-20785-10080566

PATIENT
  Sex: Female

DRUGS (3)
  1. THALOMID [Suspect]
     Indication: MULTIPLE MYELOMA
     Route: 048
     Dates: start: 20060701, end: 20060901
  2. THALOMID [Suspect]
     Route: 048
     Dates: start: 20070401, end: 20080701
  3. THALOMID [Suspect]
     Route: 048
     Dates: start: 20081201, end: 20100701

REACTIONS (3)
  - BLOOD COUNT ABNORMAL [None]
  - BONE LESION [None]
  - PROTEIN TOTAL INCREASED [None]
